FAERS Safety Report 7737759-1 (Version None)
Quarter: 2011Q3

REPORT INFORMATION
  Report Type: 
  Country: None (occurrence: None)
  Receive Date: 20110906
  Receipt Date: 20110824
  Transmission Date: 20111222
  Serious: Yes (Hospitalization)
  Sender: FDA-Public Use
  Company Number: UTC-009691

PATIENT
  Age: 57 Year
  Sex: Female
  Weight: 85.9 kg

DRUGS (5)
  1. LETAIRIS [Concomitant]
  2. OXYGEN (OXYGEN) [Concomitant]
  3. DIURETICS (DIURETICS) [Concomitant]
  4. TYVASO [Suspect]
     Indication: PULMONARY ARTERIAL HYPERTENSION
     Dosage: 216 MCG (54 MCG, 4 IN 1 D), INHALATION
     Route: 055
     Dates: start: 20110811
  5. ASPIRIN [Concomitant]

REACTIONS (1)
  - CARDIAC FAILURE [None]
